FAERS Safety Report 6961648-3 (Version None)
Quarter: 2010Q3

REPORT INFORMATION
  Report Type: 
  Country: None (occurrence: None)
  Receive Date: 20100901
  Receipt Date: 20100823
  Transmission Date: 20110219
  Serious: Yes (Hospitalization)
  Sender: FDA-Public Use
  Company Number: DE-ELI_LILLY_AND_COMPANY-DE201008007037

PATIENT
  Age: 65 Year
  Sex: Male
  Weight: 56 kg

DRUGS (8)
  1. GEMCITABINE HCL [Suspect]
     Indication: NON-SMALL CELL LUNG CANCER
     Dosage: 1752 MG, 1 IN 3 WEEKS
     Route: 042
     Dates: start: 20100520
  2. CARBOPLATIN [Suspect]
     Indication: NON-SMALL CELL LUNG CANCER
     Dosage: 380 MG, 1 IN 3 WEEKS
     Route: 042
     Dates: start: 20100520
  3. CETUXIMAB [Suspect]
     Indication: NON-SMALL CELL LUNG CANCER
     Dosage: 365 MG, WEEKLY (1/W)
     Route: 042
     Dates: start: 20100520
  4. TOREM [Concomitant]
     Indication: HYPERTENSION
     Dosage: 5 MG, UNK
  5. ASPIRIN [Concomitant]
     Indication: ARTERIAL OCCLUSIVE DISEASE
     Dosage: 100 MG, UNK
  6. DELIX [Concomitant]
     Indication: HYPERTENSION
     Dosage: 10 MG, UNK
  7. SYMBICORT [Concomitant]
     Indication: CHRONIC OBSTRUCTIVE PULMONARY DISEASE
     Dosage: 160/4.5, UNK
  8. SPIRIVA [Concomitant]
     Indication: CHRONIC OBSTRUCTIVE PULMONARY DISEASE
     Dosage: 1 D/F, UNK

REACTIONS (1)
  - PAIN [None]
